FAERS Safety Report 7080320 (Version 2)
Quarter: 2019Q1

REPORT INFORMATION
  Report Type: Spontaneous
  Country: US (occurrence: US)
  Receive Date: 20090813
  Receipt Date: 20190112
  Transmission Date: 20190418
  Serious: Yes (Hospitalization, Other)
  Sender: FDA-Public Use
  Company Number: US-TEVA-205461USA

PATIENT
  Age: 54 Year
  Sex: Male

DRUGS (4)
  1. WARFARIN [Concomitant]
     Active Substance: WARFARIN
     Indication: PROTEIN S DEFICIENCY
     Route: 065
  2. IMMUNE GLOBULIN INFUSION (NOS) [Suspect]
     Active Substance: HUMAN IMMUNOGLOBULIN G
     Indication: DEMYELINATING POLYNEUROPATHY
     Route: 065
  3. MYCOPHENOLATE MOFETIL TABLETS, 500 MG [Suspect]
     Active Substance: MYCOPHENOLATE MOFETIL
     Indication: DEMYELINATING POLYNEUROPATHY
     Route: 065
  4. PREDNISONE (WATSON LABORATORIES) [Suspect]
     Active Substance: PREDNISONE
     Indication: DEMYELINATING POLYNEUROPATHY
     Route: 065

REACTIONS (4)
  - Calciphylaxis [Unknown]
  - Fungal infection [Unknown]
  - Bacterial infection [Unknown]
  - Skin ulcer [Unknown]

NARRATIVE: CASE EVENT DATE: 2009
